FAERS Safety Report 25190663 (Version 1)
Quarter: 2025Q2

REPORT INFORMATION
  Report Type: Spontaneous
  Country: US (occurrence: None)
  Receive Date: 20250411
  Receipt Date: 20250411
  Transmission Date: 20250716
  Serious: No
  Sender: FDA-CTU
  Company Number: None

PATIENT
  Age: 67 Year
  Sex: Female
  Weight: 49.9 kg

DRUGS (14)
  1. XIIDRA [Suspect]
     Active Substance: LIFITEGRAST
     Indication: Dry eye
     Dosage: OTHER QUANTITY : 1 DROP IN EACH EYE 2X DAILY ?FREQUENCY : TWICE A DAY??OTHER ROUTE : 1 DROP IN EACH EYE 2X DAILY? ?
     Route: 050
     Dates: start: 20250113, end: 20250317
  2. ATPRAZOLAM ER 2mg once a day (morning) [Concomitant]
  3. Escitalopram 20mg once a day (bedtime) [Concomitant]
  4. Trazodone 100mg once a day (bedtime) [Concomitant]
  5. One a day women^s 50+ Multi Vitamin [Concomitant]
  6. Viactine Chews - Calcium 650mg [Concomitant]
  7. Omega 3 1000 mg (EPA 645mg DHA 310 mg) [Concomitant]
  8. D3 2000 IU [Concomitant]
  9. VITAMIN B COMPLEX [Concomitant]
     Active Substance: CYANOCOBALAMIN\DEXPANTHENOL\NIACINAMIDE\PYRIDOXINE HYDROCHLORIDE\RIBOFLAVIN 5^-PHOSPHATE SODIUM\THIA
  10. C - 500mg [Concomitant]
  11. A - 2400mcg [Concomitant]
  12. Magnesium 420 mg [Concomitant]
  13. Tumeric 1000mg [Concomitant]
  14. Aspirin 81 mg coated [Concomitant]

REACTIONS (1)
  - Lacrimation increased [None]

NARRATIVE: CASE EVENT DATE: 20250206
